FAERS Safety Report 10041187 (Version 1)
Quarter: 2014Q1

REPORT INFORMATION
  Report Type: Spontaneous
  Country: DK (occurrence: DK)
  Receive Date: 20140327
  Receipt Date: 20140327
  Transmission Date: 20141002
  Serious: Yes (Hospitalization)
  Sender: FDA-Public Use
  Company Number: DK-PFIZER INC-2014084229

PATIENT
  Age: 56 Year
  Sex: Female
  Weight: 83 kg

DRUGS (11)
  1. XALKORI [Suspect]
     Indication: NON-SMALL CELL LUNG CANCER
     Dosage: 250 MG, 2X/DAY
     Route: 048
     Dates: start: 20131121, end: 20140102
  2. ATORVASTATIN ^TEVA^ [Concomitant]
  3. DIURAL [Concomitant]
  4. INNOHEP [Concomitant]
  5. LOSARTAN POTASSIUM [Concomitant]
  6. LANTUS SOLO STAR [Concomitant]
  7. METFORMIN HYDROCHLORIDE [Concomitant]
  8. NOVORAPID [Concomitant]
  9. PREDNISOLON [Concomitant]
  10. PENICILLINE [Concomitant]
  11. PINEX [Concomitant]

REACTIONS (1)
  - Renal failure acute [Not Recovered/Not Resolved]
